FAERS Safety Report 21825758 (Version 1)
Quarter: 2023Q1

REPORT INFORMATION
  Report Type: Spontaneous
  Country: US (occurrence: US)
  Receive Date: 20230105
  Receipt Date: 20230105
  Transmission Date: 20230418
  Serious: No
  Sender: FDA-Public Use
  Company Number: US-drreddys-SPO/USA/22/0158490

PATIENT
  Age: 71 Year
  Sex: Male

DRUGS (8)
  1. LENALIDOMIDE [Suspect]
     Active Substance: LENALIDOMIDE
     Indication: Plasma cell myeloma in remission
     Dosage: TAKE 1 CAPSULE BY MOUTH DAILY ON MONDAYS THROUGH FRIDAYS OF EACH WEEK
     Route: 048
     Dates: start: 20221105
  2. ACYCLOVIR TAB 800MG [Concomitant]
     Indication: Product used for unknown indication
  3. ALPHA LIPOIC CAP 200MG [Concomitant]
     Indication: Product used for unknown indication
  4. BACTRIM TAB 400-80MG [Concomitant]
     Indication: Product used for unknown indication
     Dosage: 400-800MG
  5. CALCIUM+D3 TAB 600-800MG [Concomitant]
     Indication: Product used for unknown indication
     Dosage: 600-800 MG
  6. FISH OIL OME CAP 1000MG [Concomitant]
     Indication: Product used for unknown indication
  7. FLOMAX [Concomitant]
     Active Substance: TAMSULOSIN HYDROCHLORIDE
     Indication: Product used for unknown indication
  8. MAGNESIUM TAB 250MG [Concomitant]
     Indication: Product used for unknown indication

REACTIONS (1)
  - Product dose omission issue [Unknown]
